FAERS Safety Report 6480011-5 (Version None)
Quarter: 2009Q4

REPORT INFORMATION
  Report Type: 
  Country: None (occurrence: None)
  Receive Date: 20091208
  Receipt Date: 20091104
  Transmission Date: 20100525
  Serious: Yes (Life-Threatening, Hospitalization)
  Sender: FDA-Public Use
  Company Number: JP-SANOFI-AVENTIS-F01200900906

PATIENT
  Age: 71 Year
  Sex: Male
  Weight: 74 kg

DRUGS (7)
  1. CLOPIDOGREL BISULFATE [Suspect]
     Indication: ACUTE CORONARY SYNDROME
     Dosage: DOSE TEXT: STARTING DOSE
     Route: 048
     Dates: start: 20080701, end: 20080701
  2. CLOPIDOGREL BISULFATE [Suspect]
     Dosage: DOSE TEXT: MAINTENANCE DOSE
     Route: 048
     Dates: start: 20080702
  3. ASPIRIN [Concomitant]
     Route: 048
     Dates: start: 20080701
  4. IMIDAPRIL [Concomitant]
     Route: 048
     Dates: start: 20080702
  5. ARTIST [Concomitant]
     Route: 048
     Dates: start: 20080702
  6. ATORVASTATIN [Concomitant]
     Route: 048
     Dates: start: 20080702
  7. MAGNESIUM OXIDE [Concomitant]
     Indication: CONSTIPATION
     Route: 048
     Dates: start: 20080702

REACTIONS (2)
  - ANGINA PECTORIS [None]
  - CORONARY ARTERY DISSECTION [None]
